FAERS Safety Report 10695432 (Version 1)
Quarter: 2014Q4

REPORT INFORMATION
  Report Type: Spontaneous
  Country: US (occurrence: None)
  Receive Date: 20141223
  Receipt Date: 20141223
  Transmission Date: 20150529
  Serious: No
  Sender: FDA-Public Use
  Company Number: 1000070424

PATIENT
  Age: 78 Year
  Sex: Female

DRUGS (1)
  1. LINZESS [Suspect]
     Active Substance: LINACLOTIDE
     Indication: IRRITABLE BOWEL SYNDROME
     Route: 048
     Dates: start: 20140902

REACTIONS (4)
  - Abdominal discomfort [None]
  - Nausea [None]
  - Nervousness [None]
  - Fatigue [None]

NARRATIVE: CASE EVENT DATE: 20140904
